FAERS Safety Report 4372847-1 (Version None)
Quarter: 2004Q2

REPORT INFORMATION
  Report Type: 
  Country: None (occurrence: None)
  Receive Date: 20040603
  Receipt Date: 20040521
  Transmission Date: 20050107
  Serious: Yes (Hospitalization)
  Sender: FDA-Public Use
  Company Number: HQWYE080924MAY04

PATIENT
  Age: 63 Year
  Sex: Female
  Weight: 111.68 kg

DRUGS (7)
  1. PREMARIN [Suspect]
     Indication: HORMONE REPLACEMENT THERAPY
     Dosage: 0.625 MG FOR 28 DAYS, OFF FOR ONE WEEK, ORAL
     Route: 048
     Dates: start: 20020101, end: 20031101
  2. FENTANYL [Concomitant]
  3. PREVACID [Concomitant]
  4. CELEBREX [Concomitant]
  5. NEURONTIN [Concomitant]
  6. LIPITOR [Concomitant]
  7. EFFEXOR XR (VANLAFAXINE HYDROCHLORIDE) [Concomitant]

REACTIONS (1)
  - THROMBOSIS [None]
